FAERS Safety Report 10249963 (Version 1)
Quarter: 2014Q2

REPORT INFORMATION
  Report Type: Spontaneous
  Country: IR (occurrence: IR)
  Receive Date: 20140620
  Receipt Date: 20140620
  Transmission Date: 20141212
  Serious: Yes (Other)
  Sender: FDA-Public Use
  Company Number: IR-ACTAVIS-2014-13902

PATIENT
  Age: 36 Year
  Sex: Female

DRUGS (1)
  1. ACYCLOVIR (UNKNOWN) [Suspect]
     Indication: HERPES SIMPLEX MENINGOENCEPHALITIS
     Dosage: UNKNOWN
     Route: 042

REACTIONS (1)
  - Drug-induced liver injury [Recovered/Resolved]
